FAERS Safety Report 20376580 (Version 1)
Quarter: 2022Q1

REPORT INFORMATION
  Report Type: Spontaneous
  Country: US (occurrence: US)
  Receive Date: 20220125
  Receipt Date: 20220125
  Transmission Date: 20220423
  Serious: Yes (Other)
  Sender: FDA-Public Use
  Company Number: US-GLAXOSMITHKLINE-US2022GSK014025

PATIENT
  Sex: Female

DRUGS (6)
  1. ZANTAC [Suspect]
     Active Substance: RANITIDINE HYDROCHLORIDE
     Dosage: 25 MG, QD
     Route: 065
     Dates: start: 198801, end: 199901
  2. ZANTAC [Suspect]
     Active Substance: RANITIDINE HYDROCHLORIDE
     Dosage: 25 MG, QD
     Route: 065
     Dates: start: 198801, end: 199901
  3. ZANTAC [Suspect]
     Active Substance: RANITIDINE HYDROCHLORIDE
     Dosage: UNK, WE
     Route: 065
     Dates: start: 198801, end: 199901
  4. RANITIDINE [Suspect]
     Active Substance: RANITIDINE
     Dosage: 25 MG, QD
     Route: 065
     Dates: start: 198801, end: 199901
  5. RANITIDINE [Suspect]
     Active Substance: RANITIDINE
     Dosage: 25 MG, QD
     Route: 065
     Dates: start: 198801, end: 199901
  6. RANITIDINE HYDROCHLORIDE [Suspect]
     Active Substance: RANITIDINE HYDROCHLORIDE
     Dosage: 25 MG/ML, WE
     Route: 065
     Dates: start: 198801, end: 199901

REACTIONS (1)
  - Pancreatic carcinoma [Unknown]
